FAERS Safety Report 8066684-4 (Version None)
Quarter: 2012Q1

REPORT INFORMATION
  Report Type: 
  Country: None (occurrence: None)
  Receive Date: 20120124
  Receipt Date: 20120116
  Transmission Date: 20120608
  Serious: Yes (Hospitalization)
  Sender: FDA-Public Use
  Company Number: US-BAYER-2011-043393

PATIENT
  Age: 33 Year
  Sex: Female
  Weight: 104 kg

DRUGS (12)
  1. DROSPIRENONE AND ETHINYL ESTRADIOL [Suspect]
     Indication: CONTRACEPTION
     Dosage: UNK
     Dates: start: 20070701, end: 20090501
  2. DROSPIRENONE AND ETHINYL ESTRADIOL [Suspect]
     Indication: UNEVALUABLE EVENT
  3. AZITHROMYCIN [Concomitant]
     Dosage: 250 MG, QD
     Route: 048
     Dates: start: 20090329
  4. YASMIN [Suspect]
     Indication: CONTRACEPTION
     Dosage: UNK
     Dates: start: 20070701, end: 20090501
  5. YASMIN [Suspect]
     Indication: MENORRHAGIA
  6. CLARITHROMYCIN [Concomitant]
     Dosage: 500 MG, BID
     Route: 048
     Dates: start: 20090327, end: 20090405
  7. IBUPROFEN [Concomitant]
     Dosage: UNK UNK, PRN
     Route: 048
  8. ACETYLSALICYLIC ACID SRT [Concomitant]
     Dosage: UNK
     Route: 048
     Dates: start: 20090508
  9. YASMIN [Suspect]
     Indication: POLYCYSTIC OVARIES
  10. YASMIN [Suspect]
     Indication: UNEVALUABLE EVENT
  11. DROSPIRENONE AND ETHINYL ESTRADIOL [Suspect]
     Indication: POLYCYSTIC OVARIES
  12. DROSPIRENONE AND ETHINYL ESTRADIOL [Suspect]
     Indication: MENORRHAGIA

REACTIONS (5)
  - CHOLELITHIASIS [None]
  - VOMITING [None]
  - FAECES DISCOLOURED [None]
  - CHOLECYSTITIS CHRONIC [None]
  - PAIN [None]
